FAERS Safety Report 14791662 (Version 1)
Quarter: 2018Q2

REPORT INFORMATION
  Report Type: Spontaneous
  Country: US (occurrence: US)
  Receive Date: 20180413
  Receipt Date: 20180413
  Transmission Date: 20180711
  Serious: No
  Sender: FDA-Public Use
  Company Number: None

PATIENT
  Age: 46 Year
  Sex: Female
  Weight: 47.7 kg

DRUGS (1)
  1. LEVOFLOXACIN. [Suspect]
     Active Substance: LEVOFLOXACIN
     Indication: INFECTION
     Dosage: ?          QUANTITY:5 DF DOSAGE FORM;?
     Route: 048
     Dates: start: 20180404, end: 20180404

REACTIONS (2)
  - Tendon disorder [None]
  - Product substitution issue [None]

NARRATIVE: CASE EVENT DATE: 20180404
